FAERS Safety Report 16743598 (Version 1)
Quarter: 2019Q3

REPORT INFORMATION
  Report Type: Spontaneous
  Country: US (occurrence: US)
  Receive Date: 20190827
  Receipt Date: 20190827
  Transmission Date: 20191005
  Serious: No
  Sender: FDA-Public Use
  Company Number: US-MALLINCKRODT-T201902517

PATIENT
  Sex: Male

DRUGS (1)
  1. MORPHINE [Suspect]
     Active Substance: MORPHINE
     Indication: PAIN
     Dosage: UNK
     Route: 048
     Dates: start: 2002, end: 2004

REACTIONS (6)
  - Hyperhidrosis [Unknown]
  - Therapeutic product effect incomplete [Unknown]
  - Chills [Unknown]
  - Drug withdrawal syndrome [Unknown]
  - Nasopharyngitis [Unknown]
  - Feeling hot [Unknown]
